FAERS Safety Report 4561296-9 (Version None)
Quarter: 2005Q1

REPORT INFORMATION
  Report Type: 
  Country: None (occurrence: None)
  Receive Date: 20050124
  Receipt Date: 20050110
  Transmission Date: 20050727
  Serious: Yes (Hospitalization)
  Sender: FDA-Public Use
  Company Number: 2005010669

PATIENT
  Age: 56 Year
  Sex: Female
  Weight: 102.0593 kg

DRUGS (18)
  1. BEXTRA [Suspect]
     Indication: PERIARTHRITIS
     Dosage: 20 MG (20 MG, 1 IN 1 D)
     Dates: start: 20020101, end: 20050101
  2. BEXTRA [Suspect]
     Indication: POLYMYALGIA RHEUMATICA
     Dosage: 20 MG (20 MG, 1 IN 1 D)
     Dates: start: 20020101, end: 20050101
  3. PREDNISONE [Concomitant]
  4. ASPIRIN [Concomitant]
  5. BACLOFEN [Concomitant]
  6. LORAZEPAM [Concomitant]
  7. BELLASPON RETARD (BELLADONNA ALKALOIDS, ERGOTAMINE TARTRATE, PHENOBARB [Concomitant]
  8. NADOLOL [Concomitant]
  9. ESOMEPRAZOLE (ESOMEPRAZOLE) [Concomitant]
  10. NORTRIPTYLINE HCL [Concomitant]
  11. PRAVASTATIN SODIUM [Concomitant]
  12. CONJUGATED ESTROGENS [Concomitant]
  13. MONTELUKAST SODIUM (MONTELUKAST SODIUM) [Concomitant]
  14. CALAMINE/CAMPHOR/DIPHENHYDRAMINE (CALAMINE, CAMPHOR, DIPHENHYDRAMINE) [Concomitant]
  15. LEVOTHYROXINE SODIUM [Concomitant]
  16. TOPIRAMATE [Concomitant]
  17. SERTRALINE HCL [Concomitant]
  18. ETODOLAC [Concomitant]

REACTIONS (10)
  - BONE GRAFT [None]
  - CEREBROSPINAL FLUID LEAKAGE [None]
  - ECZEMA [None]
  - MEDICAL DEVICE COMPLICATION [None]
  - OPERATIVE HAEMORRHAGE [None]
  - PERIARTHRITIS [None]
  - PROCEDURAL COMPLICATION [None]
  - RASH MACULAR [None]
  - SKIN BURNING SENSATION [None]
  - THROMBOSIS [None]
